FAERS Safety Report 4541744-0 (Version None)
Quarter: 2004Q4

REPORT INFORMATION
  Report Type: 
  Country: None (occurrence: None)
  Receive Date: 20041230
  Receipt Date: 20041223
  Transmission Date: 20050328
  Serious: Yes (Hospitalization)
  Sender: FDA-Public Use
  Company Number: PHRM2004FR03751

PATIENT
  Age: 65 Year
  Sex: Male

DRUGS (11)
  1. VOLTAREN [Suspect]
     Dosage: 50 MG/DAY
     Route: 048
     Dates: start: 20041010, end: 20041013
  2. VOLTAREN [Suspect]
     Dosage: 150 MG/DAY
     Route: 048
     Dates: start: 20041014, end: 20041017
  3. ARAVA [Suspect]
     Dosage: 10 MG, QD
     Route: 048
     Dates: end: 20041017
  4. CORTANCYL [Concomitant]
     Dosage: 9 MG, QD
     Route: 048
  5. REMICADE [Concomitant]
     Dosage: 400 MG EVERY 8 WEEKS
     Route: 042
  6. NOVONORM [Concomitant]
     Dosage: 1 MG, TID
     Route: 048
  7. VASTEN [Concomitant]
     Dosage: 20 MG, QD
     Route: 048
  8. DOLIPRANE [Concomitant]
     Dosage: 100 MG, QID
  9. ACTONEL [Concomitant]
     Dosage: 1 DF, QW
  10. CACIT D3 [Concomitant]
     Dosage: 1 DF, QD
     Route: 048
  11. OGAST [Concomitant]
     Dosage: 1 DF, QD
     Route: 048

REACTIONS (15)
  - BLOOD ALKALINE PHOSPHATASE INCREASED [None]
  - C-REACTIVE PROTEIN INCREASED [None]
  - COMPLEMENT FACTOR C3 INCREASED [None]
  - FURUNCLE [None]
  - GAMMA-GLUTAMYLTRANSFERASE INCREASED [None]
  - HAEMATURIA [None]
  - HYPOREFLEXIA [None]
  - HYPOTONIA [None]
  - LEUKOCYTOCLASTIC VASCULITIS [None]
  - PAIN [None]
  - PLATELET COUNT INCREASED [None]
  - PURPURA [None]
  - RED BLOOD CELL SEDIMENTATION RATE INCREASED [None]
  - SKIN LESION [None]
  - WHITE BLOOD CELL COUNT INCREASED [None]
